FAERS Safety Report 11119459 (Version 3)
Quarter: 2015Q4

REPORT INFORMATION
  Report Type: Spontaneous
  Country: US (occurrence: US)
  Receive Date: 20150518
  Receipt Date: 20151112
  Transmission Date: 20160304
  Serious: Yes (Death, Hospitalization, Other)
  Sender: FDA-Public Use
  Company Number: US-009507513-1505USA006610

PATIENT
  Sex: Female
  Weight: 63.49 kg

DRUGS (1)
  1. JANUVIA [Suspect]
     Active Substance: SITAGLIPTIN PHOSPHATE
     Indication: TYPE 2 DIABETES MELLITUS
     Dosage: 100 MG, QD
     Route: 048
     Dates: start: 20111006, end: 20121112

REACTIONS (37)
  - Death [Fatal]
  - Surgery [Unknown]
  - Pleural disorder [Unknown]
  - Upper respiratory tract infection [Unknown]
  - Oropharyngeal pain [Unknown]
  - Back pain [Not Recovered/Not Resolved]
  - Blood cholesterol increased [Unknown]
  - Vision blurred [Unknown]
  - Pulmonary mass [Unknown]
  - Failure to thrive [Unknown]
  - Myocardial infarction [Unknown]
  - Failure to thrive [Unknown]
  - Acute kidney injury [Unknown]
  - Neck surgery [Unknown]
  - Renal cyst [Unknown]
  - Spider naevus [Unknown]
  - Chest pain [Unknown]
  - Oedema peripheral [Unknown]
  - Adenocarcinoma pancreas [Unknown]
  - Pyrexia [Unknown]
  - Pneumonia [Unknown]
  - Bladder dilatation [Unknown]
  - Rhinorrhoea [Unknown]
  - Headache [Unknown]
  - Pulmonary congestion [Unknown]
  - Cholangitis [Unknown]
  - Spinal osteoarthritis [Unknown]
  - Intervertebral disc calcification [Unknown]
  - Muscular weakness [Unknown]
  - Hypokalaemia [Recovering/Resolving]
  - Dehydration [Recovered/Resolved]
  - B-lymphocyte abnormalities [Unknown]
  - Hypertension [Unknown]
  - Aortic arteriosclerosis [Unknown]
  - Leukocytosis [Unknown]
  - Cholecystitis acute [Unknown]
  - Arthralgia [Unknown]

NARRATIVE: CASE EVENT DATE: 201201
